FAERS Safety Report 6596193-0 (Version None)
Quarter: 2010Q1

REPORT INFORMATION
  Report Type: 
  Country: None (occurrence: None)
  Receive Date: 20100223
  Receipt Date: 20100219
  Transmission Date: 20100710
  Serious: Yes (Death)
  Sender: FDA-Public Use
  Company Number: JP-ROCHE-672812

PATIENT
  Sex: Female

DRUGS (26)
  1. TOCILIZUMAB [Suspect]
     Indication: RHEUMATOID ARTHRITIS
     Route: 041
     Dates: start: 20081204, end: 20081204
  2. TOCILIZUMAB [Suspect]
     Route: 041
     Dates: start: 20090106, end: 20090106
  3. TOCILIZUMAB [Suspect]
     Route: 041
     Dates: start: 20090303, end: 20090303
  4. TOCILIZUMAB [Suspect]
     Route: 041
     Dates: start: 20090401, end: 20090401
  5. TOCILIZUMAB [Suspect]
     Route: 041
     Dates: start: 20090430, end: 20090430
  6. TOCILIZUMAB [Suspect]
     Route: 041
     Dates: start: 20090625, end: 20090625
  7. METHOTREXATE [Concomitant]
     Dosage: INJECTABLE OR ORAL; 8MG ONCE A WEEK
     Route: 042
     Dates: start: 20081209, end: 20090624
  8. PREDNISOLONE [Concomitant]
     Dosage: DOSE FORM: ORAL FORMULATION (NOT OTHERWISE SPECIFIED)
     Route: 048
     Dates: start: 20080807, end: 20080915
  9. PREDNISOLONE [Concomitant]
     Route: 048
     Dates: start: 20080916, end: 20080929
  10. PREDNISOLONE [Concomitant]
     Route: 048
     Dates: start: 20080930, end: 20081013
  11. PREDNISOLONE [Concomitant]
     Route: 048
     Dates: start: 20081014, end: 20081027
  12. PREDNISOLONE [Concomitant]
     Route: 048
     Dates: start: 20081028, end: 20081029
  13. PREDNISOLONE [Concomitant]
     Route: 048
     Dates: start: 20081209, end: 20081222
  14. PREDNISOLONE [Concomitant]
     Route: 048
     Dates: start: 20081223, end: 20090104
  15. PREDNISOLONE [Concomitant]
     Route: 048
     Dates: start: 20090105, end: 20090201
  16. PREDNISOLONE [Concomitant]
     Route: 048
     Dates: start: 20090202, end: 20090305
  17. PREDNISOLONE [Concomitant]
     Route: 048
     Dates: start: 20090306, end: 20090402
  18. METHYLPREDNISOLONE SODIUM SUCCINATE [Concomitant]
     Route: 042
     Dates: start: 20081030, end: 20081208
  19. METHYLPREDNISOLONE SODIUM SUCCINATE [Concomitant]
     Route: 042
     Dates: start: 20090403, end: 20090627
  20. BACTRAMIN [Concomitant]
     Dosage: DOSE: 1-5 MG
     Route: 048
     Dates: start: 20080807, end: 20090101
  21. BACTRAMIN [Concomitant]
     Dosage: DRUG NAME: BAKTAR
     Route: 042
     Dates: start: 20080807, end: 20090101
  22. OMEPRAL [Concomitant]
     Route: 042
     Dates: start: 20080807, end: 20090406
  23. OMEPRAL [Concomitant]
     Route: 048
     Dates: start: 20080807, end: 20090406
  24. GASTER [Concomitant]
     Route: 042
     Dates: start: 20090407, end: 20090101
  25. LASIX [Concomitant]
     Route: 042
     Dates: start: 20090605, end: 20090605
  26. ZOSYN [Concomitant]
     Route: 042
     Dates: start: 20090615, end: 20090621

REACTIONS (1)
  - ASPHYXIA [None]
